FAERS Safety Report 18967593 (Version 3)
Quarter: 2021Q2

REPORT INFORMATION
  Report Type: Spontaneous
  Country: JP (occurrence: JP)
  Receive Date: 20210304
  Receipt Date: 20210518
  Transmission Date: 20210717
  Serious: Yes (Other)
  Sender: FDA-Public Use
  Company Number: JP-REGENERON PHARMACEUTICALS, INC.-2021-29385

PATIENT

DRUGS (8)
  1. CRAVIT [Concomitant]
     Active Substance: LEVOFLOXACIN
     Indication: INFECTION PROPHYLAXIS
     Dosage: FOUR TIMES PER DAY (LEFT EYE)
     Route: 031
     Dates: start: 20201205, end: 20201207
  2. ALPHAGAN P [Concomitant]
     Active Substance: BRIMONIDINE TARTRATE
     Indication: GLAUCOMA
     Dosage: TWICE PER DAY(LEFT EYE)
     Route: 031
     Dates: start: 20201119
  3. GLANATEC [Concomitant]
     Active Substance: RIPASUDIL HYDROCHLORIDE DIHYDRATE
     Indication: GLAUCOMA
     Dosage: TWICE PER DAY(LEFT EYE)
     Route: 031
     Dates: start: 20201217
  4. SANCOBA [Concomitant]
     Active Substance: CYANOCOBALAMIN
     Indication: PRODUCT USED FOR UNKNOWN INDICATION
     Dosage: UNK
  5. COSOPT [Concomitant]
     Active Substance: DORZOLAMIDE HYDROCHLORIDE\TIMOLOL MALEATE
     Indication: GLAUCOMA
     Dosage: TWICE PER DAY(LEFT EYE)
     Route: 031
     Dates: start: 20201003
  6. LUMIGAN [Concomitant]
     Active Substance: BIMATOPROST
     Indication: GLAUCOMA
     Dosage: ONCE PER DAY(LEFT EYE)
     Route: 031
     Dates: start: 20210206
  7. GATIFLO [Concomitant]
     Active Substance: GATIFLOXACIN
     Indication: INFECTION PROPHYLAXIS
     Dosage: FOUR TIMES PER DAY (LEFT EYE)
     Route: 031
     Dates: start: 20201208, end: 20201217
  8. EYLEA [Suspect]
     Active Substance: AFLIBERCEPT
     Indication: GLAUCOMA
     Dosage: 1 KIT,2 MG (LEFT EYE)
     Route: 031
     Dates: start: 20201208, end: 20201208

REACTIONS (3)
  - Retinal artery occlusion [Recovered/Resolved]
  - Device use issue [Unknown]
  - Intraocular pressure increased [Recovered/Resolved]

NARRATIVE: CASE EVENT DATE: 20201208
